FAERS Safety Report 19660590 (Version 1)
Quarter: 2021Q3

REPORT INFORMATION
  Report Type: Spontaneous
  Country: US (occurrence: US)
  Receive Date: 20210805
  Receipt Date: 20210805
  Transmission Date: 20211014
  Serious: Yes (Other)
  Sender: FDA-Public Use
  Company Number: US-SAOL THERAPEUTICS-2021SAO00262

PATIENT
  Age: 77 Year
  Sex: Female

DRUGS (3)
  1. LIORESAL [Suspect]
     Active Substance: BACLOFEN
     Indication: MUSCLE SPASTICITY
     Dosage: 120 ?G, \DAY
     Route: 037
     Dates: end: 20210714
  2. LIORESAL [Suspect]
     Active Substance: BACLOFEN
     Dosage: UNK, PUMP WAS PLACED INTO SIMPLE CONTINUOUS MODE
     Route: 037
     Dates: start: 20210715
  3. LIORESAL [Suspect]
     Active Substance: BACLOFEN
     Dosage: UNK; PUMP PUT INTO MINIMUM RATE
     Route: 037
     Dates: start: 20210714, end: 20210715

REACTIONS (2)
  - Hip fracture [Unknown]
  - Device failure [Recovered/Resolved]

NARRATIVE: CASE EVENT DATE: 202103
